FAERS Safety Report 7086658-X (Version None)
Quarter: 2010Q4

REPORT INFORMATION
  Report Type: 
  Country: None (occurrence: None)
  Receive Date: 20101105
  Receipt Date: 20101101
  Transmission Date: 20110411
  Serious: Yes (Death)
  Sender: FDA-Public Use
  Company Number: JP-ELI_LILLY_AND_COMPANY-JP201010003655

PATIENT
  Sex: Male
  Weight: 53 kg

DRUGS (8)
  1. ALIMTA [Suspect]
     Indication: NON-SMALL CELL LUNG CANCER RECURRENT
     Dosage: 750 MG, OTHER(EVERY 28 DAYS)
     Route: 042
     Dates: start: 20100715, end: 20100812
  2. PANVITAN [Concomitant]
     Dosage: 1 G, DAILY (1/D)
     Route: 048
     Dates: start: 20100707, end: 20100826
  3. CYANOCOBALAMIN [Concomitant]
     Dosage: 1 MG, OTHER
     Route: 030
     Dates: start: 20100707, end: 20100707
  4. FOIPAN [Concomitant]
     Indication: PANCREATITIS CHRONIC
     Dosage: 300 MG, DAILY (1/D)
     Route: 048
     Dates: start: 19980101, end: 20100826
  5. TAKEPRON [Concomitant]
     Indication: GASTRITIS
     Dosage: 30 MG, DAILY (1/D)
     Route: 048
     Dates: start: 20100705, end: 20100826
  6. DECADRON [Concomitant]
     Indication: METASTASES TO CENTRAL NERVOUS SYSTEM
     Dosage: 4 MG, DAILY (1/D)
     Route: 048
     Dates: start: 20100705, end: 20100826
  7. ROHYPNOL [Concomitant]
     Indication: INSOMNIA
     Dosage: 2 MG, DAILY (1/D)
     Route: 048
     Dates: start: 19980101, end: 20100826
  8. MAGMITT [Concomitant]
     Indication: CONSTIPATION
     Dosage: 660 MG, DAILY (1/D)
     Route: 048
     Dates: start: 20070619, end: 20100826

REACTIONS (1)
  - INTERSTITIAL LUNG DISEASE [None]
